FAERS Safety Report 5745221-0 (Version None)
Quarter: 2008Q2

REPORT INFORMATION
  Report Type: 
  Country: None (occurrence: None)
  Receive Date: 20080521
  Receipt Date: 20080519
  Transmission Date: 20081010
  Serious: Yes (Disabling)
  Sender: FDA-Public Use
  Company Number: B0360346A

PATIENT
  Sex: Female

DRUGS (4)
  1. PAROXETINE HCL [Suspect]
     Indication: DEPRESSION
     Route: 048
     Dates: start: 19990706
  2. PAROXETINE HCL [Suspect]
     Dosage: 10MG PER DAY
     Route: 065
  3. AMITRIPTYLINE HCL [Concomitant]
     Dates: start: 20020129
  4. HERBAL MEDICINE [Concomitant]

REACTIONS (35)
  - ABDOMINAL PAIN [None]
  - ABDOMINAL PAIN UPPER [None]
  - ABNORMAL BEHAVIOUR [None]
  - ANOREXIA [None]
  - ANXIETY [None]
  - CONFUSIONAL STATE [None]
  - CRYING [None]
  - DEPRESSION [None]
  - DISTURBANCE IN ATTENTION [None]
  - DIZZINESS [None]
  - DRUG DOSE OMISSION [None]
  - DRUG INEFFECTIVE [None]
  - DRUG WITHDRAWAL SYNDROME [None]
  - EMOTIONAL DISORDER [None]
  - FATIGUE [None]
  - FEELING COLD [None]
  - FEELING HOT [None]
  - HAEMORRHOIDS [None]
  - HYPERHIDROSIS [None]
  - INSOMNIA [None]
  - INTENTIONAL SELF-INJURY [None]
  - INTUSSUSCEPTION [None]
  - MALAISE [None]
  - NAUSEA [None]
  - NIGHTMARE [None]
  - PAIN [None]
  - PANIC ATTACK [None]
  - PARAESTHESIA [None]
  - POSTOPERATIVE WOUND COMPLICATION [None]
  - PSYCHIATRIC SYMPTOM [None]
  - RECTOCELE [None]
  - SUICIDAL IDEATION [None]
  - VOLVULUS [None]
  - VULVOVAGINAL DISCOMFORT [None]
  - WITHDRAWAL SYNDROME [None]
